FAERS Safety Report 24665372 (Version 1)
Quarter: 2024Q4

REPORT INFORMATION
  Report Type: Report from Study
  Country: KR (occurrence: KR)
  Receive Date: 20241126
  Receipt Date: 20241126
  Transmission Date: 20250114
  Serious: Yes (Hospitalization)
  Sender: EMD SERONO INC
  Company Number: KR-Merck Healthcare KGaA-2024061186

PATIENT
  Sex: Male

DRUGS (1)
  1. MAVENCLAD [Suspect]
     Active Substance: CLADRIBINE
     Indication: Multiple sclerosis

REACTIONS (2)
  - Loss of consciousness [Unknown]
  - Fall [Unknown]
